FAERS Safety Report 15493855 (Version 2)
Quarter: 2018Q4

REPORT INFORMATION
  Report Type: Report from Study
  Country: US (occurrence: US)
  Receive Date: 20181012
  Receipt Date: 20181023
  Transmission Date: 20190205
  Serious: Yes (Hospitalization, Other)
  Sender: FDA-Public Use
  Company Number: US-GILEAD-2018-0366348

PATIENT
  Age: 67 Year
  Sex: Male

DRUGS (4)
  1. REVATIO [Concomitant]
     Active Substance: SILDENAFIL CITRATE
  2. REMODULIN [Concomitant]
     Active Substance: TREPROSTINIL
  3. AMBRISENTAN [Suspect]
     Active Substance: AMBRISENTAN
     Indication: PRODUCT USED FOR UNKNOWN INDICATION
     Dosage: 10 MG, QD
     Route: 065
     Dates: start: 20120320
  4. XARELTO [Concomitant]
     Active Substance: RIVAROXABAN

REACTIONS (6)
  - Pulmonary hypertension [Unknown]
  - Chest pain [Unknown]
  - Dyspnoea [Unknown]
  - Dizziness [Unknown]
  - Hypoxia [Unknown]
  - Nausea [Unknown]
